FAERS Safety Report 6314711-4 (Version None)
Quarter: 2009Q3

REPORT INFORMATION
  Report Type: 
  Country: None (occurrence: None)
  Receive Date: 20090819
  Receipt Date: 20090813
  Transmission Date: 20100115
  Serious: Yes (Other)
  Sender: FDA-Public Use
  Company Number: JP-ASTRAZENECA-2009SE08030

PATIENT
  Age: 2 Month
  Sex: Male

DRUGS (1)
  1. FOSCAVIR [Suspect]
     Dosage: DOSE UNKNOWN
     Route: 041
     Dates: start: 20090801

REACTIONS (1)
  - HYPERCALCAEMIA [None]
